FAERS Safety Report 5981232-8 (Version None)
Quarter: 2008Q4

REPORT INFORMATION
  Report Type: 
  Country: None (occurrence: None)
  Receive Date: 20081205
  Receipt Date: 20081201
  Transmission Date: 20090506
  Serious: Yes (Disabling)
  Sender: FDA-Public Use
  Company Number: DK-BRISTOL-MYERS SQUIBB COMPANY-14424816

PATIENT
  Age: 47 Year
  Sex: Male

DRUGS (4)
  1. BLEOMYCIN SULFATE [Suspect]
     Indication: HODGKIN'S DISEASE
     Dosage: THERAPY INITIALLY STARTED ON 08-JAN-2007.EVERY TWO WEEKS
     Route: 030
     Dates: start: 20070529, end: 20070529
  2. VELBE [Concomitant]
     Indication: HODGKIN'S DISEASE
     Dosage: EVERY TWO WEEKS
     Route: 042
     Dates: start: 20070108, end: 20070529
  3. DACARBAZINE [Concomitant]
     Indication: HODGKIN'S DISEASE
     Dosage: EVERY TWO WEEKS
     Route: 042
     Dates: start: 20070108, end: 20070529
  4. ADRIAMYCIN PFS [Concomitant]
     Indication: HODGKIN'S DISEASE
     Dosage: EVERY TWO WEEKS
     Route: 042
     Dates: start: 20070108, end: 20070529

REACTIONS (3)
  - HEADACHE [None]
  - MENTAL DISORDER [None]
  - PULMONARY FIBROSIS [None]
